FAERS Safety Report 22224891 (Version 1)
Quarter: 2023Q2

REPORT INFORMATION
  Report Type: Spontaneous
  Country: US (occurrence: US)
  Receive Date: 20230418
  Receipt Date: 20230418
  Transmission Date: 20230721
  Serious: Yes (Other)
  Sender: FDA-Public Use
  Company Number: US-002147023-NVSC2023US087836

PATIENT
  Sex: Female

DRUGS (2)
  1. AFINITOR [Suspect]
     Active Substance: EVEROLIMUS
     Indication: Neuroendocrine tumour
     Dosage: 10 MG, QD (BY MOUTH)
     Route: 048
     Dates: start: 202108, end: 20221111
  2. MOUTH WASH [Concomitant]
     Indication: Product used for unknown indication
     Dosage: UNK, QD (REGULARLY)
     Route: 065

REACTIONS (5)
  - Metastases to liver [Unknown]
  - Lung neoplasm [Unknown]
  - Anxiety [Unknown]
  - Condition aggravated [Unknown]
  - Hepatic mass [Unknown]
